FAERS Safety Report 7707201-5 (Version None)
Quarter: 2011Q3

REPORT INFORMATION
  Report Type: 
  Country: None (occurrence: None)
  Receive Date: 20110819
  Receipt Date: 20110812
  Transmission Date: 20111222
  Serious: Yes (Hospitalization)
  Sender: FDA-Public Use
  Company Number: 1011247

PATIENT
  Age: 26 Year
  Sex: Female

DRUGS (3)
  1. ATIVAN [Suspect]
     Indication: ANXIETY
     Dosage: 1 MG, UNKNOWN INTRAVENOUS (NOT OTHERWISE SPECIFIED)
     Route: 042
  2. ANTIBIOTICS [Concomitant]
     Indication: PNEUMONIA
  3. BUPRENORPHINE HCL AND NALOXONE HCL [Suspect]
     Indication: DRUG DEPENDENCE

REACTIONS (4)
  - DRUG INTERACTION [None]
  - LOBAR PNEUMONIA [None]
  - CHEST DISCOMFORT [None]
  - RESPIRATORY DEPRESSION [None]
